FAERS Safety Report 5739483-3 (Version None)
Quarter: 2008Q2

REPORT INFORMATION
  Report Type: 
  Country: None (occurrence: None)
  Receive Date: 20080515
  Receipt Date: 20080509
  Transmission Date: 20081010
  Serious: Yes (Other)
  Sender: FDA-Public Use
  Company Number: JP-ASTRAZENECA-2008AP02766

PATIENT
  Age: 23344 Day
  Sex: Female

DRUGS (5)
  1. TENORMIN [Suspect]
     Indication: ESSENTIAL HYPERTENSION
     Route: 048
     Dates: start: 20050518
  2. DIOVAN [Suspect]
     Indication: ESSENTIAL HYPERTENSION
     Route: 048
     Dates: start: 20051114, end: 20080414
  3. CALSLOT [Concomitant]
     Indication: ESSENTIAL HYPERTENSION
     Route: 048
     Dates: start: 20050518
  4. FLUITRAN [Concomitant]
     Indication: ESSENTIAL HYPERTENSION
     Route: 048
     Dates: start: 20050518
  5. CARDENALIN [Concomitant]
     Indication: ESSENTIAL HYPERTENSION
     Dosage: FREQUENCY UNKNOWN
     Route: 048

REACTIONS (1)
  - LIVER DISORDER [None]
